FAERS Safety Report 5833312-5 (Version None)
Quarter: 2008Q3

REPORT INFORMATION
  Report Type: 
  Country: None (occurrence: None)
  Receive Date: 20080804
  Receipt Date: 20080804
  Transmission Date: 20090109
  Serious: Yes (Other)
  Sender: FDA-Public Use
  Company Number: None

PATIENT
  Age: 64 Year
  Sex: Male
  Weight: 73.0291 kg

DRUGS (2)
  1. TRAZODONE HCL [Suspect]
     Indication: INSOMNIA
     Dosage: 50 MG, HS PRN, PO
     Route: 048
     Dates: start: 20080709
  2. TRAZODONE HCL [Suspect]
     Indication: INSOMNIA
     Dosage: 50 MG, HS PRN, PO
     Route: 048
     Dates: start: 20080712

REACTIONS (1)
  - PRIAPISM [None]
